FAERS Safety Report 4366862-1 (Version None)
Quarter: 2004Q2

REPORT INFORMATION
  Report Type: 
  Country: None (occurrence: None)
  Receive Date: 20040524
  Receipt Date: 20040520
  Transmission Date: 20050107
  Serious: Yes (Life-Threatening, Hospitalization, Other)
  Sender: FDA-Public Use
  Company Number: 2003-03-0102

PATIENT
  Age: 38 Year
  Sex: Male

DRUGS (3)
  1. PEG-INTRON [Suspect]
     Indication: HEPATITIS C
     Dosage: 150 MCG QWK SUBCUTANEOUS
     Route: 058
     Dates: start: 20030124, end: 20030214
  2. REBETOL [Suspect]
     Indication: HEPATITIS C
     Dosage: 1200 MG QD ORAL
     Route: 048
     Dates: start: 20030124, end: 20030214
  3. IBUPROFEN [Concomitant]

REACTIONS (9)
  - APPENDICITIS [None]
  - BACK DISORDER [None]
  - CELLULITIS [None]
  - DEEP VEIN THROMBOSIS [None]
  - IMPAIRED WORK ABILITY [None]
  - PHLEBITIS [None]
  - PYREXIA [None]
  - VIRAL INFECTION [None]
  - VOMITING PROJECTILE [None]
